FAERS Safety Report 17430699 (Version 1)
Quarter: 2020Q1

REPORT INFORMATION
  Report Type: Spontaneous
  Country: US (occurrence: US)
  Receive Date: 20200218
  Receipt Date: 20200218
  Transmission Date: 20200409
  Serious: Yes (Disabling, Other)
  Sender: FDA-Public Use
  Company Number: US-PFIZER INC-2020035879

PATIENT
  Sex: Male

DRUGS (3)
  1. GENTAMICIN SULFATE. [Suspect]
     Active Substance: GENTAMICIN SULFATE
     Dosage: 615 MG, DAILY
     Dates: start: 199302
  2. GENTAMICIN SULFATE. [Suspect]
     Active Substance: GENTAMICIN SULFATE
     Indication: OSTEOMYELITIS BACTERIAL
     Dosage: 480 MG, ONCE DAILY
     Dates: start: 199302
  3. AMPICILLIN AND SULBACTAM [Concomitant]
     Active Substance: AMPICILLIN SODIUM\SULBACTAM SODIUM
     Indication: OSTEOMYELITIS BACTERIAL
     Dosage: UNK
     Dates: start: 199302

REACTIONS (4)
  - Balance disorder [Not Recovered/Not Resolved]
  - Prescribed overdose [Unknown]
  - Inner ear disorder [Not Recovered/Not Resolved]
  - Off label use [Unknown]

NARRATIVE: CASE EVENT DATE: 199302
